FAERS Safety Report 9612555 (Version 1)
Quarter: 2013Q4

REPORT INFORMATION
  Report Type: Spontaneous
  Country: FR (occurrence: FR)
  Receive Date: 20131010
  Receipt Date: 20131010
  Transmission Date: 20140711
  Serious: Yes (Death, Hospitalization)
  Sender: FDA-Public Use
  Company Number: FR-SA-2013SA097904

PATIENT
  Age: 4 Year
  Sex: Female
  Weight: 15.5 kg

DRUGS (3)
  1. EVOLTRA [Suspect]
     Indication: ACUTE LYMPHOCYTIC LEUKAEMIA
     Route: 042
     Dates: start: 20080503, end: 20080507
  2. ETOPOSIDE [Suspect]
     Indication: ACUTE LYMPHOCYTIC LEUKAEMIA
     Route: 042
     Dates: start: 20080503, end: 20080507
  3. ENDOXAN [Suspect]
     Indication: ACUTE LYMPHOCYTIC LEUKAEMIA
     Route: 042
     Dates: start: 20080503, end: 20080507

REACTIONS (4)
  - Renal tubular disorder [Fatal]
  - Abdominal compartment syndrome [Fatal]
  - Renal failure acute [Fatal]
  - Capillary leak syndrome [Fatal]
